FAERS Safety Report 16165890 (Version 1)
Quarter: 2019Q2

REPORT INFORMATION
  Report Type: Spontaneous
  Country: FR (occurrence: FR)
  Receive Date: 20190406
  Receipt Date: 20190406
  Transmission Date: 20190711
  Serious: Yes (Hospitalization)
  Sender: FDA-Public Use
  Company Number: FR-ACCORD-118303

PATIENT
  Age: 91 Year
  Weight: 59.5 kg

DRUGS (2)
  1. ALDACTONE [Suspect]
     Active Substance: SPIRONOLACTONE
     Indication: CARDIAC FAILURE
     Dosage: 25 MG, DIVISIBLE COATED TABLET
     Route: 048
     Dates: end: 20181114
  2. FUROSEMIDE. [Suspect]
     Active Substance: FUROSEMIDE
     Indication: CARDIAC FAILURE
     Route: 048
     Dates: start: 20181114, end: 20181114

REACTIONS (3)
  - Cardioactive drug level increased [Recovered/Resolved]
  - Acute kidney injury [Recovered/Resolved]
  - Hyperkalaemia [Recovered/Resolved]

NARRATIVE: CASE EVENT DATE: 20181114
